FAERS Safety Report 4628075-5 (Version None)
Quarter: 2005Q2

REPORT INFORMATION
  Report Type: 
  Country: None (occurrence: None)
  Receive Date: 20050406
  Receipt Date: 20050329
  Transmission Date: 20051028
  Serious: Yes (Other)
  Sender: FDA-Public Use
  Company Number: US-GLAXOSMITHKLINE-A0551701A

PATIENT
  Age: 56 Year
  Sex: Female
  Weight: 86.4 kg

DRUGS (21)
  1. TUMS E-X TABLETS, SUGAR FREE ORANGE [Suspect]
     Route: 048
     Dates: start: 20050328, end: 20050330
  2. PEPTO BISMOL [Suspect]
     Route: 048
  3. TRAZODONE HCL [Concomitant]
  4. NEXIUM [Concomitant]
  5. FOLIC ACID [Concomitant]
  6. INSULIN [Concomitant]
  7. LIPITOR [Concomitant]
  8. PAXIL [Concomitant]
  9. OYSTERCAL 500 [Concomitant]
  10. LIPITOR [Concomitant]
  11. LISINOPRIL [Concomitant]
  12. TRAZODONE HCL [Concomitant]
  13. ONE A DAY MULTIVITAMIN [Concomitant]
  14. ASPIRIN [Concomitant]
  15. FOLIC ACID [Concomitant]
  16. LORAZEPAM [Concomitant]
  17. INSULIN [Concomitant]
  18. METFORMIN HCL [Concomitant]
  19. DETROL [Concomitant]
  20. TYLENOL [Concomitant]
  21. UNSPECIFIED MEDICATION [Concomitant]

REACTIONS (2)
  - FAECES DISCOLOURED [None]
  - MELAENA [None]
